APPROVED DRUG PRODUCT: SUMATRIPTAN
Active Ingredient: SUMATRIPTAN
Strength: 20MG/SPRAY
Dosage Form/Route: SPRAY;NASAL
Application: A204841 | Product #002 | TE Code: AB
Applicant: LANNETT CO INC
Approved: Feb 19, 2016 | RLD: No | RS: No | Type: RX